FAERS Safety Report 21536333 (Version 4)
Quarter: 2022Q4

REPORT INFORMATION
  Report Type: Report from Study
  Country: IT (occurrence: IT)
  Receive Date: 20221101
  Receipt Date: 20221215
  Transmission Date: 20230113
  Serious: Yes (Other)
  Sender: FDA-Public Use
  Company Number: IT-NOVARTISPH-NVSC2022IT243762

PATIENT
  Age: 74 Year
  Sex: Female
  Weight: 70 kg

DRUGS (5)
  1. PIQRAY [Suspect]
     Active Substance: ALPELISIB
     Indication: Endometrial cancer
     Dosage: 300 MG/ DIE
     Route: 048
     Dates: start: 20220915, end: 20220920
  2. PIQRAY [Suspect]
     Active Substance: ALPELISIB
     Dosage: 250 MG
     Route: 065
     Dates: start: 20220929, end: 20221003
  3. PIQRAY [Suspect]
     Active Substance: ALPELISIB
     Dosage: 250 MG
     Route: 065
     Dates: start: 20221013, end: 20221017
  4. PIQRAY [Suspect]
     Active Substance: ALPELISIB
     Dosage: 200 MG, QD (DIE)
     Route: 048
     Dates: start: 20221027, end: 20221029
  5. PIQRAY [Suspect]
     Active Substance: ALPELISIB
     Dosage: 50 MG
     Route: 065

REACTIONS (11)
  - White blood cell count increased [Recovered/Resolved]
  - Granulocyte count increased [Recovered/Resolved]
  - Platelet count increased [Recovered/Resolved]
  - Hyperglycaemia [Recovered/Resolved]
  - Blood creatinine increased [Recovered/Resolved]
  - Toxicity to various agents [Not Recovered/Not Resolved]
  - Diarrhoea [Unknown]
  - Discharge [Unknown]
  - Fatigue [Unknown]
  - Constipation [Unknown]
  - Mucous stools [Unknown]

NARRATIVE: CASE EVENT DATE: 20220920
